FAERS Safety Report 4939442-4 (Version None)
Quarter: 2006Q1

REPORT INFORMATION
  Report Type: 
  Country: None (occurrence: None)
  Receive Date: 20060306
  Receipt Date: 20060228
  Transmission Date: 20060701
  Serious: Yes (Death, Hospitalization)
  Sender: FDA-Public Use
  Company Number: TCI2006A00882

PATIENT
  Age: 67 Year
  Sex: Male

DRUGS (2)
  1. LEUPROLIDE ACETATE [Suspect]
     Indication: PROSTATE CANCER
     Dosage: 3.75 MG (3.75 MG, 1 IN 28 D), PER ORAL
     Route: 048
  2. CHLORMADINONE ACETATE TAB [Concomitant]

REACTIONS (1)
  - INTERSTITIAL LUNG DISEASE [None]
